FAERS Safety Report 13373890 (Version 1)
Quarter: 2017Q1

REPORT INFORMATION
  Report Type: Spontaneous
  Country: US (occurrence: US)
  Receive Date: 20170327
  Receipt Date: 20170327
  Transmission Date: 20170429
  Serious: Yes (Other)
  Sender: FDA-Public Use
  Company Number: None

PATIENT
  Age: 68 Year
  Sex: Female
  Weight: 81 kg

DRUGS (4)
  1. ANORO ELLIPTA [Concomitant]
     Active Substance: UMECLIDINIUM BROMIDE\VILANTEROL TRIFENATATE
  2. XELODA [Suspect]
     Active Substance: CAPECITABINE
     Indication: ANAL CANCER
     Dosage: ?          QUANTITY:1 TABLET(S);?
     Route: 048
     Dates: start: 20110816, end: 20110826
  3. METFORMIN [Concomitant]
     Active Substance: METFORMIN HYDROCHLORIDE
  4. PROAIR HFA [Concomitant]
     Active Substance: ALBUTEROL SULFATE

REACTIONS (5)
  - Therapy non-responder [None]
  - Tooth fracture [None]
  - Nerve injury [None]
  - Tooth loss [None]
  - Gingival disorder [None]

NARRATIVE: CASE EVENT DATE: 20140716
